FAERS Safety Report 7339204-7 (Version None)
Quarter: 2011Q1

REPORT INFORMATION
  Report Type: 
  Country: None (occurrence: None)
  Receive Date: 20110228
  Receipt Date: 20110214
  Transmission Date: 20110831
  Serious: Yes (Other)
  Sender: FDA-Public Use
  Company Number: 814118

PATIENT
  Age: 67 Year
  Weight: 110 kg

DRUGS (1)
  1. MORPHINE SULFATE [Suspect]
     Indication: PAIN
     Dosage: 4 MG, I TIME, INTRAVENOUS (NOT WISE SPECIFIED)
     Route: 042
     Dates: start: 20110214, end: 20110214

REACTIONS (3)
  - HYPERSENSITIVITY [None]
  - INJECTION SITE PRURITUS [None]
  - INJECTION SITE URTICARIA [None]
